FAERS Safety Report 12909490 (Version 1)
Quarter: 2016Q4

REPORT INFORMATION
  Report Type: Spontaneous
  Country: US (occurrence: US)
  Receive Date: 20161104
  Receipt Date: 20161104
  Transmission Date: 20170207
  Serious: Yes (Other)
  Sender: FDA-Public Use
  Company Number: US-AMGEN-USASP2016152615

PATIENT
  Age: 67 Year
  Sex: Female

DRUGS (1)
  1. ENBREL [Suspect]
     Active Substance: ETANERCEPT
     Indication: PRODUCT USED FOR UNKNOWN INDICATION
     Dosage: 50 MG, EVERY SEVEN DAYS
     Route: 058
     Dates: start: 2006

REACTIONS (4)
  - Rhinorrhoea [Unknown]
  - Diarrhoea [Unknown]
  - Anxiety [Unknown]
  - Blindness [Unknown]

NARRATIVE: CASE EVENT DATE: 2016
